FAERS Safety Report 7581825-0 (Version None)
Quarter: 2011Q2

REPORT INFORMATION
  Report Type: 
  Country: None (occurrence: None)
  Receive Date: 20110629
  Receipt Date: 20110621
  Transmission Date: 20111010
  Serious: Yes (Other)
  Sender: FDA-Public Use
  Company Number: US-RB-024426-11

PATIENT
  Sex: Male

DRUGS (3)
  1. SUBOXONE [Suspect]
     Indication: DRUG DEPENDENCE
     Route: 060
     Dates: start: 20110316
  2. BENICAR HCT [Concomitant]
     Indication: HYPERTENSION
     Dosage: FORM UNKNOWN
     Route: 065
  3. XANAX [Suspect]
     Indication: PRODUCT USED FOR UNKNOWN INDICATION
     Dosage: .5 MG 5-10 TIMES DAILY; FORM UNKNOWN
     Route: 048
     Dates: start: 19910301, end: 20110316

REACTIONS (8)
  - DEHYDRATION [None]
  - HYPERACUSIS [None]
  - TREMOR [None]
  - HALLUCINATION [None]
  - CHILLS [None]
  - VISION BLURRED [None]
  - PHOTOPHOBIA [None]
  - DECREASED APPETITE [None]
